FAERS Safety Report 6267464-2 (Version None)
Quarter: 2009Q3

REPORT INFORMATION
  Report Type: 
  Country: None (occurrence: None)
  Receive Date: 20090714
  Receipt Date: 20090708
  Transmission Date: 20100115
  Serious: Yes (Hospitalization, Other)
  Sender: FDA-Public Use
  Company Number: US-AMGEN-QUU336013

PATIENT
  Sex: Female

DRUGS (2)
  1. ENBREL [Suspect]
     Indication: RHEUMATOID ARTHRITIS
     Route: 058
     Dates: start: 20020115
  2. ENBREL [Suspect]
     Indication: PSORIASIS

REACTIONS (5)
  - CONTUSION [None]
  - DIARRHOEA [None]
  - FALL [None]
  - INJECTION SITE PAIN [None]
  - PSORIASIS [None]
